FAERS Safety Report 4539448-3 (Version None)
Quarter: 2004Q4

REPORT INFORMATION
  Report Type: 
  Country: None (occurrence: None)
  Receive Date: 20041228
  Receipt Date: 20041228
  Transmission Date: 20050328
  Serious: No
  Sender: FDA-Public Use
  Company Number: None

PATIENT
  Age: 45 Year
  Sex: Female

DRUGS (1)
  1. TORADOL [Suspect]
     Dosage: TAB

REACTIONS (1)
  - MEDICATION ERROR [None]
